FAERS Safety Report 7118381-7 (Version None)
Quarter: 2010Q4

REPORT INFORMATION
  Report Type: 
  Country: None (occurrence: None)
  Receive Date: 20101123
  Receipt Date: 20101115
  Transmission Date: 20110411
  Serious: Yes (Other)
  Sender: FDA-Public Use
  Company Number: US-JNJFOC-20101104953

PATIENT
  Sex: Female
  Weight: 104.33 kg

DRUGS (5)
  1. NUCYNTA [Suspect]
     Indication: ARTHRALGIA
     Dosage: 3 TIMES DAILY
     Route: 048
     Dates: start: 20101108, end: 20101111
  2. ACTOS [Concomitant]
     Indication: DIABETES MELLITUS
     Dosage: ONCE DAILY
     Route: 048
  3. ATENOLOL [Concomitant]
     Indication: HYPERTENSION
     Dosage: ONCE DAILY
     Route: 048
  4. FUROSEMIDE [Concomitant]
     Indication: DIURETIC THERAPY
     Dosage: TWICE A DAY
     Route: 048
  5. POTASSIUM CHLORIDE [Concomitant]
     Indication: MEDICAL DIET
     Dosage: ONCE DAILY
     Route: 048

REACTIONS (5)
  - DEPRESSION [None]
  - DISCOMFORT [None]
  - DRUG INEFFECTIVE [None]
  - FEELING ABNORMAL [None]
  - NAUSEA [None]
